FAERS Safety Report 4538185-9 (Version None)
Quarter: 2004Q4

REPORT INFORMATION
  Report Type: 
  Country: None (occurrence: None)
  Receive Date: 20041221
  Receipt Date: 20041116
  Transmission Date: 20050328
  Serious: Yes (Hospitalization)
  Sender: FDA-Public Use
  Company Number: MK200411-0185-1

PATIENT
  Age: 41 Year
  Sex: Male

DRUGS (11)
  1. TOFRANIL [Suspect]
     Dosage: 600 MG, DAILY
  2. TOFRANIL [Concomitant]
  3. INDOMETHACIN [Concomitant]
  4. ALPROSTADIL [Concomitant]
  5. BERAPROST SODIUM [Concomitant]
  6. BROTIZOLAM [Concomitant]
  7. EPALRESTAT [Concomitant]
  8. ETIZOLAM [Concomitant]
  9. GOSHAJINKIGAN [Concomitant]
  10. INSULIN [Concomitant]
  11. MEXILETINE [Concomitant]

REACTIONS (2)
  - HYPOKALAEMIA [None]
  - INAPPROPRIATE ANTIDIURETIC HORMONE SECRETION [None]
